FAERS Safety Report 8097120 (Version 3)
Quarter: 2013Q3

REPORT INFORMATION
  Report Type: Spontaneous
  Country: US (occurrence: US)
  Receive Date: 20110819
  Receipt Date: 20130704
  Transmission Date: 20140515
  Serious: Yes (Hospitalization, Other)
  Sender: FDA-Public Use
  Company Number: US-BIOGENIDEC-2011BI030081

PATIENT
  Age: 41 Year
  Sex: Female

DRUGS (1)
  1. AVONEX [Suspect]
     Indication: MULTIPLE SCLEROSIS
     Route: 030
     Dates: start: 20060407

REACTIONS (4)
  - Eye operation [Recovered/Resolved]
  - Myasthenia gravis [Recovered/Resolved]
  - Cardiac neoplasm unspecified [Recovered/Resolved]
  - Photophobia [Not Recovered/Not Resolved]
